FAERS Safety Report 14289265 (Version 4)
Quarter: 2018Q1

REPORT INFORMATION
  Report Type: Report from Study
  Country: US (occurrence: US)
  Receive Date: 20171214
  Receipt Date: 20180309
  Transmission Date: 20180509
  Serious: Yes (Hospitalization)
  Sender: FDA-Public Use
  Company Number: US-EXELIXIS-XL18417011647

PATIENT
  Age: 72 Year
  Sex: Male
  Weight: 91.7 kg

DRUGS (3)
  1. IPILIMUMAB [Suspect]
     Active Substance: IPILIMUMAB
     Indication: PROSTATE CANCER METASTATIC
     Dosage: 3 MG/KG OVER 90 MINUTES ON DAY 1
     Route: 042
     Dates: start: 20170627
  2. NIVOLUMAB [Suspect]
     Active Substance: NIVOLUMAB
     Indication: PROSTATE CANCER METASTATIC
     Dosage: 1 MG/KG OVER 60 MINUTES ON DAY 1 CYCLES 1-4 (21 DAYS)
     Route: 042
     Dates: start: 20170627
  3. XL184 [Suspect]
     Active Substance: CABOZANTINIB
     Indication: PROSTATE CANCER METASTATIC
     Dosage: 40 MG, QD
     Route: 048
     Dates: start: 20170627, end: 20170629

REACTIONS (1)
  - Pyrexia [Recovered/Resolved]

NARRATIVE: CASE EVENT DATE: 20170629
